FAERS Safety Report 24008324 (Version 1)
Quarter: 2024Q2

REPORT INFORMATION
  Report Type: Spontaneous
  Country: US (occurrence: US)
  Receive Date: 20240625
  Receipt Date: 20240625
  Transmission Date: 20240715
  Serious: Yes (Hospitalization, Other)
  Sender: FDA-Public Use
  Company Number: US-AMGEN-USASP2024123339

PATIENT
  Age: 75 Year
  Sex: Male

DRUGS (2)
  1. PREDNISONE [Suspect]
     Active Substance: PREDNISONE
     Indication: Drug reaction with eosinophilia and systemic symptoms
     Dosage: UNK (FIVE DAY TAPER)
     Route: 048
  2. PREDNISONE [Suspect]
     Active Substance: PREDNISONE
     Dosage: UNK (SLOW TAPER)
     Route: 048

REACTIONS (10)
  - Lactic acidosis [Recovering/Resolving]
  - Hypertransaminasaemia [Recovering/Resolving]
  - Hypoxia [Recovering/Resolving]
  - Lymphadenopathy [Recovering/Resolving]
  - Lymphadenopathy mediastinal [Recovering/Resolving]
  - Rheumatoid factor increased [Recovering/Resolving]
  - Drug effective for unapproved indication [Unknown]
  - Human herpesvirus 6 infection reactivation [Recovering/Resolving]
  - Rash macular [Recovering/Resolving]
  - Off label use [Unknown]
